FAERS Safety Report 25299977 (Version 1)
Quarter: 2025Q2

REPORT INFORMATION
  Report Type: Report from Study
  Country: US (occurrence: US)
  Receive Date: 20250512
  Receipt Date: 20250512
  Transmission Date: 20250717
  Serious: Yes (Other)
  Sender: ABBVIE
  Company Number: US-ABBVIE-6241980

PATIENT
  Age: 39 Year
  Sex: Female

DRUGS (1)
  1. RINVOQ [Suspect]
     Active Substance: UPADACITINIB
     Indication: Ankylosing spondylitis
     Dosage: FORM STRENGTH: 15 MG, EXTENDED RELEASE TABLET
     Route: 048
     Dates: start: 20250404, end: 20250407

REACTIONS (3)
  - Seizure [Unknown]
  - Sjogren^s syndrome [Unknown]
  - Urticaria [Unknown]

NARRATIVE: CASE EVENT DATE: 20250404
